FAERS Safety Report 10840326 (Version 1)
Quarter: 2015Q1

REPORT INFORMATION
  Report Type: Spontaneous
  Country: US (occurrence: None)
  Receive Date: 20150218
  Receipt Date: 20150218
  Transmission Date: 20150721
  Serious: Yes (Death)
  Sender: FDA-Public Use
  Company Number: NSR_01888_2015

PATIENT
  Age: 33 Year
  Sex: Female

DRUGS (2)
  1. PROPRANOLOL [Suspect]
     Active Substance: PROPRANOLOL\PROPRANOLOL HYDROCHLORIDE
     Indication: PRODUCT USED FOR UNKNOWN INDICATION
     Dosage: UNKNOWN (UNTIL NOT CONTINUING) DF ORAL
     Route: 048
  2. ETHANOL [Suspect]
     Active Substance: ALCOHOL
     Dosage: UNKNOWN (UNTIL NOT CONTINUING)

REACTIONS (4)
  - Exposure via ingestion [None]
  - Cardio-respiratory arrest [None]
  - Poisoning [None]
  - Completed suicide [None]

NARRATIVE: CASE EVENT DATE: 2013
